FAERS Safety Report 14341786 (Version 1)
Quarter: 2017Q4

REPORT INFORMATION
  Report Type: Spontaneous
  Country: US (occurrence: US)
  Receive Date: 20171229
  Receipt Date: 20171229
  Transmission Date: 20180321
  Serious: No
  Sender: FDA-Public Use
  Company Number: None

PATIENT
  Age: 31 Year
  Sex: Female

DRUGS (1)
  1. STELARA [Suspect]
     Active Substance: USTEKINUMAB
     Dosage: EVERY 12 WEEK
     Route: 058

REACTIONS (4)
  - Nasopharyngitis [None]
  - Cough [None]
  - Rhinorrhoea [None]
  - Respiratory tract congestion [None]

NARRATIVE: CASE EVENT DATE: 20171229
